FAERS Safety Report 25822464 (Version 1)
Quarter: 2025Q3

REPORT INFORMATION
  Report Type: Spontaneous
  Country: US (occurrence: US)
  Receive Date: 20250919
  Receipt Date: 20250919
  Transmission Date: 20251020
  Serious: Yes (Life-Threatening, Hospitalization)
  Sender: MYLAN
  Company Number: US-MYLANLABS-2025M1078280

PATIENT
  Age: 72 Year
  Sex: Female

DRUGS (16)
  1. METFORMIN [Interacting]
     Active Substance: METFORMIN HYDROCHLORIDE
     Indication: Type 2 diabetes mellitus
  2. METFORMIN [Interacting]
     Active Substance: METFORMIN HYDROCHLORIDE
     Route: 065
  3. METFORMIN [Interacting]
     Active Substance: METFORMIN HYDROCHLORIDE
     Route: 065
  4. METFORMIN [Interacting]
     Active Substance: METFORMIN HYDROCHLORIDE
  5. OZEMPIC [Interacting]
     Active Substance: SEMAGLUTIDE
     Indication: Type 2 diabetes mellitus
  6. OZEMPIC [Interacting]
     Active Substance: SEMAGLUTIDE
     Route: 065
  7. OZEMPIC [Interacting]
     Active Substance: SEMAGLUTIDE
     Route: 065
  8. OZEMPIC [Interacting]
     Active Substance: SEMAGLUTIDE
  9. EMPAGLIFLOZIN [Interacting]
     Active Substance: EMPAGLIFLOZIN
     Indication: Type 2 diabetes mellitus
  10. EMPAGLIFLOZIN [Interacting]
     Active Substance: EMPAGLIFLOZIN
     Route: 065
  11. EMPAGLIFLOZIN [Interacting]
     Active Substance: EMPAGLIFLOZIN
     Route: 065
  12. EMPAGLIFLOZIN [Interacting]
     Active Substance: EMPAGLIFLOZIN
  13. CEPHALEXIN [Concomitant]
     Active Substance: CEPHALEXIN
     Indication: Cellulitis
  14. CEPHALEXIN [Concomitant]
     Active Substance: CEPHALEXIN
     Route: 065
  15. CEPHALEXIN [Concomitant]
     Active Substance: CEPHALEXIN
     Route: 065
  16. CEPHALEXIN [Concomitant]
     Active Substance: CEPHALEXIN

REACTIONS (3)
  - Euglycaemic diabetic ketoacidosis [Unknown]
  - Lactic acidosis [Unknown]
  - Drug interaction [Unknown]
